FAERS Safety Report 18729177 (Version 4)
Quarter: 2021Q1

REPORT INFORMATION
  Report Type: Spontaneous
  Country: CA (occurrence: CA)
  Receive Date: 20210112
  Receipt Date: 20210301
  Transmission Date: 20210419
  Serious: Yes (Other)
  Sender: FDA-Public Use
  Company Number: CA-JNJFOC-20210109475

PATIENT
  Age: 30 Year
  Sex: Male
  Weight: 96 kg

DRUGS (16)
  1. INFLIXIMAB, RECOMBINANT [Suspect]
     Active Substance: INFLIXIMAB
     Indication: CROHN^S DISEASE
     Route: 042
  2. INFLIXIMAB, RECOMBINANT [Suspect]
     Active Substance: INFLIXIMAB
     Indication: COLITIS ULCERATIVE
     Route: 042
  3. DIMENHYDRINATE. [Concomitant]
     Active Substance: DIMENHYDRINATE
     Indication: PREMEDICATION
     Route: 042
  4. TACROLIMUS. [Concomitant]
     Active Substance: TACROLIMUS
  5. ACETAMINOPHEN. [Concomitant]
     Active Substance: ACETAMINOPHEN
     Indication: PREMEDICATION
     Route: 048
  6. CALCIUM CITRATE [Concomitant]
     Active Substance: CALCIUM CITRATE
  7. MAGNESIUM [Concomitant]
     Active Substance: MAGNESIUM
  8. ONDANSETRON [Concomitant]
     Active Substance: ONDANSETRON
     Route: 048
  9. PREDNISONE. [Concomitant]
     Active Substance: PREDNISONE
     Route: 048
  10. SIROLIMUS. [Concomitant]
     Active Substance: SIROLIMUS
  11. HUMIRA [Suspect]
     Active Substance: ADALIMUMAB
     Indication: CROHN^S DISEASE
     Route: 058
  12. HUMIRA [Suspect]
     Active Substance: ADALIMUMAB
     Indication: CROHN^S DISEASE
     Route: 058
  13. IMURAN [Concomitant]
     Active Substance: AZATHIOPRINE
     Indication: PRODUCT USED FOR UNKNOWN INDICATION
     Route: 048
  14. PALAFER [Concomitant]
     Active Substance: FERROUS FUMARATE
     Route: 048
  15. INFLIXIMAB, RECOMBINANT [Suspect]
     Active Substance: INFLIXIMAB
     Route: 042
  16. VITAMIN D [ERGOCALCIFEROL] [Concomitant]
     Active Substance: ERGOCALCIFEROL

REACTIONS (18)
  - Inappropriate schedule of product administration [Unknown]
  - Faecal calprotectin increased [Unknown]
  - Inappropriate schedule of product administration [Not Recovered/Not Resolved]
  - Weight increased [Not Recovered/Not Resolved]
  - Weight decreased [Not Recovered/Not Resolved]
  - Therapeutic response shortened [Not Recovered/Not Resolved]
  - Drug level decreased [Not Recovered/Not Resolved]
  - Small intestinal obstruction [Unknown]
  - Culture positive [Unknown]
  - Drug specific antibody absent [Unknown]
  - Condition aggravated [Not Recovered/Not Resolved]
  - Drug level below therapeutic [Unknown]
  - Inflammatory bowel disease [Unknown]
  - Gastrointestinal wall thickening [Unknown]
  - Off label use [Not Recovered/Not Resolved]
  - Blood pressure increased [Unknown]
  - Abdominal pain [Unknown]
  - Drug ineffective [Unknown]
